FAERS Safety Report 22192243 (Version 2)
Quarter: 2023Q2

REPORT INFORMATION
  Report Type: Report from Study
  Country: DE (occurrence: DE)
  Receive Date: 20230410
  Receipt Date: 20230424
  Transmission Date: 20230721
  Serious: Yes (Hospitalization, Other)
  Sender: FDA-Public Use
  Company Number: DE-BIOGEN-2023BI01197745

PATIENT
  Age: 65 Year
  Sex: Female

DRUGS (17)
  1. DALFAMPRIDINE [Suspect]
     Active Substance: DALFAMPRIDINE
     Indication: Product used for unknown indication
     Route: 050
     Dates: start: 2017
  2. LEVOTHYROXINE SODIUM [Suspect]
     Active Substance: LEVOTHYROXINE SODIUM
     Indication: Product used for unknown indication
     Route: 050
     Dates: start: 2016
  3. REBIF [Suspect]
     Active Substance: INTERFERON BETA-1A
     Indication: Multiple sclerosis
     Route: 050
     Dates: start: 2007, end: 202303
  4. CHOLECALCIFEROL [Concomitant]
     Active Substance: CHOLECALCIFEROL
     Indication: Product used for unknown indication
     Route: 050
     Dates: start: 2017
  5. METAMIZOLE [Concomitant]
     Active Substance: METAMIZOLE
     Indication: Product used for unknown indication
     Dosage: IF NEEDED
     Route: 050
  6. KELTICAN [CYTIDINE PHOSPHATE SODIUM;DISODIUM URIDINE MONOPHOSPHATE;... [Concomitant]
     Indication: Product used for unknown indication
     Route: 050
     Dates: start: 2000
  7. BIOLECTRA [Concomitant]
     Indication: Product used for unknown indication
     Route: 050
     Dates: start: 2017
  8. PANCREATIN [Concomitant]
     Active Substance: PANCRELIPASE
     Indication: Product used for unknown indication
     Dosage: 20000 (UNSPECIFIED UNIT)
     Route: 050
     Dates: start: 2013
  9. HYPERICUM PERFORATUM WHOLE [Concomitant]
     Active Substance: HYPERICUM PERFORATUM WHOLE
     Indication: Product used for unknown indication
     Dosage: 900 (UNSPECIFIED UNIT)
     Route: 050
     Dates: start: 2017
  10. OESTRO-GYNAEDRON [Concomitant]
     Indication: Product used for unknown indication
     Route: 050
     Dates: start: 2012
  11. BROTIZOLAM [Concomitant]
     Active Substance: BROTIZOLAM
     Indication: Product used for unknown indication
     Dosage: IF NEEDED
     Route: 050
     Dates: start: 2015
  12. MOVICOL [MACROGOL 3350;POTASSIUM CHLORIDE;SODIUM BICARBONATE;SODIUM... [Concomitant]
     Indication: Product used for unknown indication
     Route: 050
     Dates: start: 2017
  13. PANTOPRAZOLE [Concomitant]
     Active Substance: PANTOPRAZOLE
     Indication: Product used for unknown indication
     Dosage: IF NEEDED
     Route: 050
     Dates: start: 2013
  14. HOMEOPATHICS [Concomitant]
     Active Substance: ARNICA MONTANA\CAUSTICUM\COMFREY ROOT\HOMEOPATHICS\LEDUM PALUSTRE TWIG\PSEUDOGNAPHALIUM OBTUSIFOLIUM
     Indication: Product used for unknown indication
     Dosage: UP TO 5 TABLETS/DAY
     Route: 050
     Dates: start: 2011
  15. HERBALS [Concomitant]
     Active Substance: HERBALS
     Indication: Product used for unknown indication
     Dosage: IF NEEDED
     Route: 050
     Dates: start: 2012
  16. CRANBERRY PLUS D MANNOS [Concomitant]
     Indication: Product used for unknown indication
     Dosage: 1 DOSAGE FORMS
     Route: 050
     Dates: start: 2017
  17. LEVOTHYROXINE SODIUM [Concomitant]
     Active Substance: LEVOTHYROXINE SODIUM
     Indication: Product used for unknown indication
     Route: 050
     Dates: start: 2016

REACTIONS (2)
  - Thyroidectomy [Unknown]
  - Goitre [Unknown]

NARRATIVE: CASE EVENT DATE: 20180101
